FAERS Safety Report 6719099-2 (Version None)
Quarter: 2010Q2

REPORT INFORMATION
  Report Type: 
  Country: None (occurrence: None)
  Receive Date: 20100507
  Receipt Date: 20100422
  Transmission Date: 20101027
  Serious: No
  Sender: FDA-Public Use
  Company Number: C-10-0104-W

PATIENT
  Sex: Male

DRUGS (1)
  1. ENALAPRIL MALEATE TABLETS, 5MG (WOCKHARDT) [Suspect]
     Indication: HYPERTENSION

REACTIONS (5)
  - ARTHRITIS [None]
  - ASTHENIA [None]
  - FATIGUE [None]
  - LETHARGY [None]
  - SOMNOLENCE [None]
